FAERS Safety Report 4700481-X (Version None)
Quarter: 2005Q2

REPORT INFORMATION
  Report Type: 
  Country: None (occurrence: None)
  Receive Date: 20050627
  Receipt Date: 20050616
  Transmission Date: 20051028
  Serious: Yes (Hospitalization)
  Sender: FDA-Public Use
  Company Number: 2005UW09366

PATIENT
  Age: 70 Year
  Sex: Female
  Weight: 55.3 kg

DRUGS (11)
  1. IRESSA [Suspect]
     Indication: RETROPERITONEAL CANCER
     Route: 048
     Dates: start: 20050518, end: 20050614
  2. TOPOTECAN [Suspect]
     Indication: RETROPERITONEAL CANCER
     Route: 042
     Dates: start: 20050518, end: 20050518
  3. TOPOTECAN [Suspect]
     Route: 042
     Dates: start: 20050525, end: 20050525
  4. TOPOTECAN [Suspect]
     Route: 042
     Dates: start: 20050601, end: 20050601
  5. SENOKOT [Concomitant]
     Dosage: 4-8 TIMES A DAY AS NEEDED
  6. AMBIEN [Concomitant]
  7. PREVACID [Concomitant]
  8. MAGNESIUM [Concomitant]
  9. LORTAB [Concomitant]
     Dosage: EVERY 4 HOURS AS NEEDED
  10. OXYCONTIN [Concomitant]
  11. DILAUDID [Concomitant]

REACTIONS (4)
  - ABDOMINAL PAIN [None]
  - NAUSEA [None]
  - PYREXIA [None]
  - VOMITING [None]
